FAERS Safety Report 17211490 (Version 1)
Quarter: 2019Q4

REPORT INFORMATION
  Report Type: Spontaneous
  Country: GB (occurrence: GB)
  Receive Date: 20191229
  Receipt Date: 20191229
  Transmission Date: 20200122
  Serious: Yes (Hospitalization, Other)
  Sender: FDA-Public Use
  Company Number: GB-UNICHEM PHARMACEUTICALS (USA) INC-UCM201912-000925

PATIENT
  Age: 44 Year
  Sex: Female

DRUGS (1)
  1. DIVALPROEX SODIUM. [Suspect]
     Active Substance: DIVALPROEX SODIUM
     Indication: EPILEPSY

REACTIONS (12)
  - Hypophagia [Recovering/Resolving]
  - Dyspnoea [Recovering/Resolving]
  - Hyperammonaemia [Recovering/Resolving]
  - Condition aggravated [Unknown]
  - Cognitive disorder [Recovered/Resolved]
  - Generalised tonic-clonic seizure [Recovered/Resolved]
  - Hyperammonaemic encephalopathy [Recovering/Resolving]
  - Depressed level of consciousness [Recovering/Resolving]
  - Coma [Recovering/Resolving]
  - Lethargy [Recovering/Resolving]
  - Respiratory acidosis [Recovered/Resolved]
  - Liver function test abnormal [Unknown]
